FAERS Safety Report 17699869 (Version 5)
Quarter: 2020Q2

REPORT INFORMATION
  Report Type: Report from Study
  Country: MX (occurrence: MX)
  Receive Date: 20200423
  Receipt Date: 20200617
  Transmission Date: 20200714
  Serious: Yes (Other)
  Sender: FDA-Public Use
  Company Number: PHHY2019MX035779

PATIENT
  Age: 69 Year
  Sex: Female
  Weight: 75 kg

DRUGS (13)
  1. PANAZECLOX [Suspect]
     Active Substance: CLONAZEPAM
     Dosage: 2.5 MG/ML, (2 IN THE MORNING AND 12 AT NIGHT)
     Route: 048
  2. QUETIAPINE. [Suspect]
     Active Substance: QUETIAPINE
     Dosage: 1 DF, TID(100 MG)
     Route: 048
  3. MIRTAZAPINE. [Suspect]
     Active Substance: MIRTAZAPINE
     Dosage: 0.5 DF, QD(15 MG AT NIGHT)
     Route: 048
  4. PANAZECLOX [Suspect]
     Active Substance: CLONAZEPAM
     Indication: AGGRESSION
     Dosage: 20 DF(2.5 MG/ML)5 IN THE MORNING, 5 IN THE AFTERNOON AND 10 AT NIGHT
     Route: 048
  5. EXELON PATCH [Suspect]
     Active Substance: RIVASTIGMINE
     Indication: FRONTOTEMPORAL DEMENTIA
     Dosage: 13.3 MG, QD PATCH 15 (CM2)
     Route: 062
     Dates: start: 201707
  6. QUETIAPINE. [Suspect]
     Active Substance: QUETIAPINE
     Indication: FRONTOTEMPORAL DEMENTIA
     Dosage: 0.5 DF, QD
     Route: 048
     Dates: start: 201803
  7. EXELON PATCH [Suspect]
     Active Substance: RIVASTIGMINE
     Indication: APHASIA
     Dosage: 13.3 MG, QD (PATCH 15 (CM2)
     Route: 062
  8. MEMANTINE. [Suspect]
     Active Substance: MEMANTINE
     Indication: FRONTOTEMPORAL DEMENTIA
     Dosage: 1 DF, QD
     Route: 048
  9. QUETIAPINE. [Suspect]
     Active Substance: QUETIAPINE
     Dosage: 0.5 DF, TID
     Route: 048
     Dates: start: 201803
  10. EXELON PATCH [Suspect]
     Active Substance: RIVASTIGMINE
     Dosage: 13.3 MG, QD (PATCH 15 (CM2)
     Route: 003
  11. MIRTAZAPINE. [Suspect]
     Active Substance: MIRTAZAPINE
     Indication: AGGRESSION
     Dosage: 1 DF, QD
     Route: 048
     Dates: start: 20190128
  12. QUETIAPINE. [Suspect]
     Active Substance: QUETIAPINE
     Dosage: 0.5 DF, QD (100 MG, AT NGHT)
     Route: 065
  13. BIPERIDEN [Concomitant]
     Active Substance: BIPERIDEN
     Indication: FRONTOTEMPORAL DEMENTIA
     Dosage: 0.5 DF, TID
     Route: 048
     Dates: start: 201901

REACTIONS (31)
  - Hypophagia [Not Recovered/Not Resolved]
  - Urinary tract infection [Recovering/Resolving]
  - Behaviour disorder [Recovering/Resolving]
  - Off label use [Unknown]
  - Eye infection [Recovering/Resolving]
  - Fall [Unknown]
  - Aggression [Recovering/Resolving]
  - Hypokinesia [Unknown]
  - Fluid intake reduced [Unknown]
  - Weight decreased [Unknown]
  - Poor quality sleep [Unknown]
  - Rib fracture [Unknown]
  - Feeling abnormal [Unknown]
  - Feeding disorder [Unknown]
  - Sensory disturbance [Unknown]
  - Contusion [Unknown]
  - Nervousness [Unknown]
  - Gait disturbance [Not Recovered/Not Resolved]
  - Sleep disorder [Unknown]
  - Urinary incontinence [Unknown]
  - Hand fracture [Unknown]
  - Constipation [Unknown]
  - Amnesia [Unknown]
  - Anxiety [Unknown]
  - Product use in unapproved indication [Not Recovered/Not Resolved]
  - Wrong technique in product usage process [Not Recovered/Not Resolved]
  - Somnolence [Not Recovered/Not Resolved]
  - Speech disorder [Unknown]
  - Aphasia [Unknown]
  - Mobility decreased [Not Recovered/Not Resolved]
  - Pain [Unknown]

NARRATIVE: CASE EVENT DATE: 201901
